FAERS Safety Report 9354460 (Version 2)
Quarter: 2013Q3

REPORT INFORMATION
  Report Type: Spontaneous
  Country: JP (occurrence: JP)
  Receive Date: 20130618
  Receipt Date: 20130806
  Transmission Date: 20140515
  Serious: Yes (Other)
  Sender: FDA-Public Use
  Company Number: JP-ASTRAZENECA-2013SE40767

PATIENT
  Age: 23648 Day
  Sex: Female

DRUGS (5)
  1. NEXIUM [Suspect]
     Indication: GASTROOESOPHAGEAL REFLUX DISEASE
     Route: 048
     Dates: start: 20130527, end: 20130528
  2. ASTOMIN [Concomitant]
     Route: 048
  3. CLARITH [Concomitant]
     Route: 048
  4. SALIVEHT [Concomitant]
     Dosage: 4 TO 5 TIMES PER DAY
     Route: 048
     Dates: start: 20130520
  5. HACHIAZULE [Concomitant]
     Route: 048
     Dates: start: 20130520

REACTIONS (1)
  - Gastroenteritis [Recovered/Resolved]
